FAERS Safety Report 24651852 (Version 3)
Quarter: 2025Q3

REPORT INFORMATION
  Report Type: Spontaneous
  Country: CA (occurrence: CA)
  Receive Date: 20241122
  Receipt Date: 20250716
  Transmission Date: 20251020
  Serious: Yes (Death, Life-Threatening, Hospitalization, Disabling, Congenital Anomaly, Other)
  Sender: Haleon PLC
  Company Number: CA-SANDOZ-SDZ2023CA076603

PATIENT
  Age: 44 Year
  Sex: Female
  Weight: 70 kg

DRUGS (333)
  1. DICLOFENAC SODIUM [Suspect]
     Active Substance: DICLOFENAC SODIUM
     Indication: Rheumatoid arthritis
  2. DICLOFENAC SODIUM [Suspect]
     Active Substance: DICLOFENAC SODIUM
     Indication: Product used for unknown indication
  3. DICLOFENAC SODIUM [Suspect]
     Active Substance: DICLOFENAC SODIUM
  4. DICLOFENAC SODIUM [Suspect]
     Active Substance: DICLOFENAC SODIUM
  5. ACETAMINOPHEN [Suspect]
     Active Substance: ACETAMINOPHEN
     Indication: Product used for unknown indication
  6. DIETARY SUPPLEMENT\HERBALS [Suspect]
     Active Substance: DIETARY SUPPLEMENT\HERBALS
     Indication: Product used for unknown indication
  7. DOXYCYCLINE HYCLATE [Suspect]
     Active Substance: DOXYCYCLINE HYCLATE
     Indication: Rheumatoid arthritis
  8. DOXYCYCLINE HYCLATE [Suspect]
     Active Substance: DOXYCYCLINE HYCLATE
  9. DOXYCYCLINE HYCLATE [Suspect]
     Active Substance: DOXYCYCLINE HYCLATE
  10. MAGNESIUM [Concomitant]
     Active Substance: MAGNESIUM
     Indication: Product used for unknown indication
  11. SULFASALAZINE [Concomitant]
     Active Substance: SULFASALAZINE
     Indication: Product used for unknown indication
  12. PREDNISONE [Suspect]
     Active Substance: PREDNISONE
     Indication: Rheumatoid arthritis
     Route: 048
  13. STELARA [Suspect]
     Active Substance: USTEKINUMAB
     Indication: Rheumatoid arthritis
     Route: 058
  14. STELARA [Suspect]
     Active Substance: USTEKINUMAB
     Route: 058
  15. STELARA [Suspect]
     Active Substance: USTEKINUMAB
     Route: 042
  16. CETIRIZINE HYDROCHLORIDE\PSEUDOEPHEDRINE HYDROCHLORIDE [Suspect]
     Active Substance: CETIRIZINE HYDROCHLORIDE\PSEUDOEPHEDRINE HYDROCHLORIDE
     Indication: Rheumatoid arthritis
  17. CETIRIZINE HYDROCHLORIDE\PSEUDOEPHEDRINE HYDROCHLORIDE [Suspect]
     Active Substance: CETIRIZINE HYDROCHLORIDE\PSEUDOEPHEDRINE HYDROCHLORIDE
  18. SULFAMETHOXAZOLE [Suspect]
     Active Substance: SULFAMETHOXAZOLE
     Indication: Product used for unknown indication
  19. TYLENOL [Concomitant]
     Active Substance: ACETAMINOPHEN
     Indication: Product used for unknown indication
  20. Lansoprazole;Naproxen [Concomitant]
     Indication: Product used for unknown indication
  21. LORAZEPAM [Concomitant]
     Active Substance: LORAZEPAM
     Indication: Product used for unknown indication
  22. LYRICA [Suspect]
     Active Substance: PREGABALIN
     Indication: Fibromyalgia
  23. CORTISONE ACETATE [Suspect]
     Active Substance: CORTISONE ACETATE
     Indication: Rheumatoid arthritis
     Route: 061
  24. CORTISONE ACETATE [Suspect]
     Active Substance: CORTISONE ACETATE
     Route: 061
  25. ALBUTEROL [Concomitant]
     Active Substance: ALBUTEROL
     Indication: Product used for unknown indication
  26. COSENTYX [Concomitant]
     Active Substance: SECUKINUMAB
     Indication: Product used for unknown indication
  27. DEXAMETHASONE [Concomitant]
     Active Substance: DEXAMETHASONE
     Indication: Product used for unknown indication
  28. ERGOCALCIFEROL\RETINOL [Concomitant]
     Active Substance: ERGOCALCIFEROL\RETINOL
     Indication: Product used for unknown indication
  29. FOSAMAX [Suspect]
     Active Substance: ALENDRONATE SODIUM
     Indication: Rheumatoid arthritis
  30. FOSAMAX [Suspect]
     Active Substance: ALENDRONATE SODIUM
     Route: 048
  31. FOSAMAX [Suspect]
     Active Substance: ALENDRONATE SODIUM
  32. FOSAMAX [Suspect]
     Active Substance: ALENDRONATE SODIUM
     Route: 048
  33. FOSAMAX [Suspect]
     Active Substance: ALENDRONATE SODIUM
  34. FOSAMAX [Suspect]
     Active Substance: ALENDRONATE SODIUM
     Route: 048
  35. FOSAMAX [Suspect]
     Active Substance: ALENDRONATE SODIUM
     Route: 005
  36. FOSAMAX [Suspect]
     Active Substance: ALENDRONATE SODIUM
     Route: 048
  37. FOSAMAX [Suspect]
     Active Substance: ALENDRONATE SODIUM
     Route: 058
  38. FOSAMAX [Suspect]
     Active Substance: ALENDRONATE SODIUM
     Route: 048
  39. QUETIAPINE FUMARATE [Concomitant]
     Active Substance: QUETIAPINE FUMARATE
     Indication: Product used for unknown indication
  40. ERELZI [Suspect]
     Active Substance: ETANERCEPT-SZZS
     Indication: Rheumatoid arthritis
     Route: 058
  41. ORENCIA [Suspect]
     Active Substance: ABATACEPT
     Indication: Psoriatic arthropathy
     Route: 058
  42. ORENCIA [Suspect]
     Active Substance: ABATACEPT
     Indication: Rheumatoid arthritis
  43. ORENCIA [Suspect]
     Active Substance: ABATACEPT
     Route: 058
  44. ORENCIA [Suspect]
     Active Substance: ABATACEPT
     Route: 042
  45. ORENCIA [Suspect]
     Active Substance: ABATACEPT
     Route: 015
  46. ORENCIA [Suspect]
     Active Substance: ABATACEPT
  47. ORENCIA [Suspect]
     Active Substance: ABATACEPT
  48. ORENCIA [Suspect]
     Active Substance: ABATACEPT
     Route: 058
  49. ORENCIA [Suspect]
     Active Substance: ABATACEPT
  50. ORENCIA [Suspect]
     Active Substance: ABATACEPT
     Route: 042
  51. ORENCIA [Suspect]
     Active Substance: ABATACEPT
     Route: 058
  52. ORENCIA [Suspect]
     Active Substance: ABATACEPT
     Route: 042
  53. ORENCIA [Suspect]
     Active Substance: ABATACEPT
     Route: 058
  54. ORENCIA [Suspect]
     Active Substance: ABATACEPT
     Route: 058
  55. ACETAMINOPHEN AND CODEINE [Concomitant]
     Active Substance: ACETAMINOPHEN\CODEINE PHOSPHATE
     Indication: Product used for unknown indication
  56. DESOXIMETASONE\SALICYLIC ACID [Suspect]
     Active Substance: DESOXIMETASONE\SALICYLIC ACID
     Indication: Rheumatoid arthritis
  57. PHTHALYLSULFATHIAZOLE [Suspect]
     Active Substance: PHTHALYLSULFATHIAZOLE
     Indication: Rheumatoid arthritis
     Route: 048
  58. PHTHALYLSULFATHIAZOLE [Suspect]
     Active Substance: PHTHALYLSULFATHIAZOLE
     Route: 048
  59. PHTHALYLSULFATHIAZOLE [Suspect]
     Active Substance: PHTHALYLSULFATHIAZOLE
     Route: 048
  60. PHTHALYLSULFATHIAZOLE [Suspect]
     Active Substance: PHTHALYLSULFATHIAZOLE
  61. PHTHALYLSULFATHIAZOLE [Suspect]
     Active Substance: PHTHALYLSULFATHIAZOLE
  62. PHTHALYLSULFATHIAZOLE [Suspect]
     Active Substance: PHTHALYLSULFATHIAZOLE
  63. COSENTYX [Suspect]
     Active Substance: SECUKINUMAB
     Indication: Rheumatoid arthritis
     Route: 005
  64. COSENTYX [Suspect]
     Active Substance: SECUKINUMAB
     Indication: Psoriatic arthropathy
  65. GLUCOSAMINE [Concomitant]
     Active Substance: GLUCOSAMINE
     Indication: Product used for unknown indication
  66. OXYCODONE [Suspect]
     Active Substance: OXYCODONE
     Indication: Product used for unknown indication
  67. OXYCODONE [Suspect]
     Active Substance: OXYCODONE
     Route: 042
  68. TYLENOL WITH CODEINE [Concomitant]
     Active Substance: ACETAMINOPHEN\CODEINE PHOSPHATE
     Indication: Product used for unknown indication
  69. CIMZIA [Suspect]
     Active Substance: CERTOLIZUMAB PEGOL
     Indication: Psoriatic arthropathy
     Route: 058
  70. CIMZIA [Suspect]
     Active Substance: CERTOLIZUMAB PEGOL
     Indication: Rheumatoid arthritis
     Route: 058
  71. CIMZIA [Suspect]
     Active Substance: CERTOLIZUMAB PEGOL
     Route: 042
  72. CIMZIA [Suspect]
     Active Substance: CERTOLIZUMAB PEGOL
     Route: 058
  73. CETIRIZINE HYDROCHLORIDE\PSEUDOEPHEDRINE HYDROCHLORIDE [Suspect]
     Active Substance: CETIRIZINE HYDROCHLORIDE\PSEUDOEPHEDRINE HYDROCHLORIDE
     Indication: Rheumatoid arthritis
  74. CETIRIZINE HYDROCHLORIDE\PSEUDOEPHEDRINE HYDROCHLORIDE [Suspect]
     Active Substance: CETIRIZINE HYDROCHLORIDE\PSEUDOEPHEDRINE HYDROCHLORIDE
  75. SOLU-MEDROL [Suspect]
     Active Substance: METHYLPREDNISOLONE SODIUM SUCCINATE
     Indication: Product used for unknown indication
     Route: 048
  76. SOLU-MEDROL [Suspect]
     Active Substance: METHYLPREDNISOLONE SODIUM SUCCINATE
     Route: 048
  77. ZOPICLONE [Concomitant]
     Active Substance: ZOPICLONE
     Indication: Product used for unknown indication
  78. APREPITANT [Suspect]
     Active Substance: APREPITANT
     Indication: Product used for unknown indication
     Route: 042
  79. APREPITANT [Suspect]
     Active Substance: APREPITANT
  80. FLUMETHASONE PIVALATE [Suspect]
     Active Substance: FLUMETHASONE PIVALATE
     Indication: Product used for unknown indication
     Route: 003
  81. PANTOPRAZOLE [Suspect]
     Active Substance: PANTOPRAZOLE
     Indication: Product used for unknown indication
     Route: 016
  82. PANTOPRAZOLE [Suspect]
     Active Substance: PANTOPRAZOLE
  83. PANTOPRAZOLE [Suspect]
     Active Substance: PANTOPRAZOLE
     Route: 048
  84. FISH OIL [Concomitant]
     Active Substance: FISH OIL
     Indication: Product used for unknown indication
  85. PIROXICAM [Concomitant]
     Active Substance: PIROXICAM
     Indication: Product used for unknown indication
  86. DESOXIMETASONE [Suspect]
     Active Substance: DESOXIMETASONE
     Indication: Rheumatoid arthritis
  87. DESOXIMETASONE [Suspect]
     Active Substance: DESOXIMETASONE
     Route: 048
  88. DESOXIMETASONE [Suspect]
     Active Substance: DESOXIMETASONE
  89. DESOXIMETASONE [Suspect]
     Active Substance: DESOXIMETASONE
  90. DESOXIMETASONE [Suspect]
     Active Substance: DESOXIMETASONE
  91. DESOXIMETASONE [Suspect]
     Active Substance: DESOXIMETASONE
  92. DESOXIMETASONE [Suspect]
     Active Substance: DESOXIMETASONE
     Route: 048
  93. DESOXIMETASONE [Suspect]
     Active Substance: DESOXIMETASONE
     Route: 048
  94. DESOXIMETASONE [Suspect]
     Active Substance: DESOXIMETASONE
     Route: 048
  95. DESOXIMETASONE [Suspect]
     Active Substance: DESOXIMETASONE
  96. DESOXIMETASONE [Suspect]
     Active Substance: DESOXIMETASONE
  97. Meloxicam;Methocarbamol [Concomitant]
     Indication: Product used for unknown indication
  98. ENBREL [Suspect]
     Active Substance: ETANERCEPT
     Indication: Psoriasis
     Route: 058
  99. ENBREL [Suspect]
     Active Substance: ETANERCEPT
     Indication: Psoriatic arthropathy
     Route: 058
  100. ENBREL [Suspect]
     Active Substance: ETANERCEPT
     Indication: Rheumatoid arthritis
     Route: 058
  101. ENBREL [Suspect]
     Active Substance: ETANERCEPT
     Route: 058
  102. ENBREL [Suspect]
     Active Substance: ETANERCEPT
     Route: 048
  103. ENBREL [Suspect]
     Active Substance: ETANERCEPT
  104. ENBREL [Suspect]
     Active Substance: ETANERCEPT
     Route: 058
  105. ENBREL [Suspect]
     Active Substance: ETANERCEPT
     Route: 058
  106. ENBREL [Suspect]
     Active Substance: ETANERCEPT
     Route: 058
  107. ENBREL [Suspect]
     Active Substance: ETANERCEPT
     Route: 058
  108. ENBREL [Suspect]
     Active Substance: ETANERCEPT
  109. ENBREL [Suspect]
     Active Substance: ETANERCEPT
  110. ENBREL [Suspect]
     Active Substance: ETANERCEPT
     Route: 058
  111. ENBREL [Suspect]
     Active Substance: ETANERCEPT
     Route: 058
  112. ENBREL [Suspect]
     Active Substance: ETANERCEPT
  113. ENBREL [Suspect]
     Active Substance: ETANERCEPT
     Route: 058
  114. CHOLECALCIFEROL [Suspect]
     Active Substance: CHOLECALCIFEROL
     Indication: Product used for unknown indication
  115. CHOLECALCIFEROL [Suspect]
     Active Substance: CHOLECALCIFEROL
     Route: 016
  116. INFLIXIMAB [Suspect]
     Active Substance: INFLIXIMAB
     Indication: Product used for unknown indication
  117. INFLIXIMAB [Suspect]
     Active Substance: INFLIXIMAB
     Route: 042
  118. INFLIXIMAB [Suspect]
     Active Substance: INFLIXIMAB
     Route: 042
  119. ALENDRONATE SODIUM [Suspect]
     Active Substance: ALENDRONATE SODIUM
     Indication: Rheumatoid arthritis
     Route: 058
  120. ALENDRONATE SODIUM [Suspect]
     Active Substance: ALENDRONATE SODIUM
     Route: 016
  121. ALENDRONATE SODIUM [Suspect]
     Active Substance: ALENDRONATE SODIUM
     Route: 048
  122. ALENDRONATE SODIUM [Suspect]
     Active Substance: ALENDRONATE SODIUM
     Route: 058
  123. ALENDRONATE SODIUM [Suspect]
     Active Substance: ALENDRONATE SODIUM
  124. SIMPONI [Suspect]
     Active Substance: GOLIMUMAB
     Indication: Rheumatoid arthritis
     Route: 058
  125. RITUXIMAB [Suspect]
     Active Substance: RITUXIMAB
     Indication: Rheumatoid arthritis
     Route: 042
  126. RITUXIMAB [Suspect]
     Active Substance: RITUXIMAB
  127. RITUXIMAB [Suspect]
     Active Substance: RITUXIMAB
     Route: 058
  128. RITUXIMAB [Suspect]
     Active Substance: RITUXIMAB
     Route: 042
  129. RITUXIMAB [Suspect]
     Active Substance: RITUXIMAB
     Route: 042
  130. RITUXIMAB [Suspect]
     Active Substance: RITUXIMAB
     Route: 042
  131. RITUXIMAB [Suspect]
     Active Substance: RITUXIMAB
  132. DICLOFENAC SODIUM [Suspect]
     Active Substance: DICLOFENAC SODIUM
     Indication: Product used for unknown indication
  133. DICLOFENAC SODIUM [Suspect]
     Active Substance: DICLOFENAC SODIUM
  134. DICLOFENAC SODIUM [Suspect]
     Active Substance: DICLOFENAC SODIUM
  135. ARAVA [Suspect]
     Active Substance: LEFLUNOMIDE
     Indication: Rheumatoid arthritis
     Route: 048
  136. ARAVA [Suspect]
     Active Substance: LEFLUNOMIDE
  137. ARAVA [Suspect]
     Active Substance: LEFLUNOMIDE
     Route: 048
  138. ARAVA [Suspect]
     Active Substance: LEFLUNOMIDE
     Route: 048
  139. ARAVA [Suspect]
     Active Substance: LEFLUNOMIDE
  140. ARAVA [Suspect]
     Active Substance: LEFLUNOMIDE
     Route: 005
  141. ARAVA [Suspect]
     Active Substance: LEFLUNOMIDE
  142. ARAVA [Suspect]
     Active Substance: LEFLUNOMIDE
     Route: 048
  143. HUMIRA [Suspect]
     Active Substance: ADALIMUMAB
     Indication: Psoriatic arthropathy
     Route: 057
  144. HUMIRA [Suspect]
     Active Substance: ADALIMUMAB
     Indication: Rheumatoid arthritis
     Route: 058
  145. HUMIRA [Suspect]
     Active Substance: ADALIMUMAB
     Route: 058
  146. HUMIRA [Suspect]
     Active Substance: ADALIMUMAB
     Route: 058
  147. HUMIRA [Suspect]
     Active Substance: ADALIMUMAB
     Route: 057
  148. HUMIRA [Suspect]
     Active Substance: ADALIMUMAB
     Route: 058
  149. HUMIRA [Suspect]
     Active Substance: ADALIMUMAB
     Route: 058
  150. ACETAMINOPHEN [Suspect]
     Active Substance: ACETAMINOPHEN
     Indication: Rheumatoid arthritis
  151. ACETAMINOPHEN [Suspect]
     Active Substance: ACETAMINOPHEN
     Indication: Product used for unknown indication
  152. ACETAMINOPHEN [Suspect]
     Active Substance: ACETAMINOPHEN
  153. TRIAMCINOLONE ACETONIDE\ZINC OXIDE [Suspect]
     Active Substance: TRIAMCINOLONE ACETONIDE\ZINC OXIDE
     Indication: Rheumatoid arthritis
     Route: 014
  154. MORPHINE [Concomitant]
     Active Substance: MORPHINE
     Indication: Product used for unknown indication
  155. PREVACID [Suspect]
     Active Substance: LANSOPRAZOLE
     Indication: Product used for unknown indication
     Route: 048
  156. PREVACID [Suspect]
     Active Substance: LANSOPRAZOLE
     Route: 048
  157. RAMIPRIL [Suspect]
     Active Substance: RAMIPRIL
     Indication: Product used for unknown indication
     Route: 016
  158. RAMIPRIL [Suspect]
     Active Substance: RAMIPRIL
  159. CODEINE [Concomitant]
     Active Substance: CODEINE
     Indication: Product used for unknown indication
  160. CETIRIZINE [Suspect]
     Active Substance: CETIRIZINE HYDROCHLORIDE
     Indication: Rheumatoid arthritis
     Route: 048
  161. CETIRIZINE [Suspect]
     Active Substance: CETIRIZINE HYDROCHLORIDE
  162. CETIRIZINE [Suspect]
     Active Substance: CETIRIZINE HYDROCHLORIDE
  163. CETIRIZINE [Suspect]
     Active Substance: CETIRIZINE HYDROCHLORIDE
  164. CETIRIZINE [Suspect]
     Active Substance: CETIRIZINE HYDROCHLORIDE
  165. CETIRIZINE [Suspect]
     Active Substance: CETIRIZINE HYDROCHLORIDE
  166. FOLIC ACID [Suspect]
     Active Substance: FOLIC ACID
     Indication: Rheumatoid arthritis
  167. FOLIC ACID [Suspect]
     Active Substance: FOLIC ACID
  168. FOLIC ACID [Suspect]
     Active Substance: FOLIC ACID
  169. FOLIC ACID [Suspect]
     Active Substance: FOLIC ACID
     Route: 058
  170. FOLIC ACID [Suspect]
     Active Substance: FOLIC ACID
  171. FOLIC ACID [Suspect]
     Active Substance: FOLIC ACID
  172. FOLIC ACID [Suspect]
     Active Substance: FOLIC ACID
  173. FOLIC ACID [Suspect]
     Active Substance: FOLIC ACID
  174. FOLIC ACID [Suspect]
     Active Substance: FOLIC ACID
     Route: 058
  175. FOLIC ACID [Suspect]
     Active Substance: FOLIC ACID
  176. FOLIC ACID [Suspect]
     Active Substance: FOLIC ACID
     Route: 048
  177. CHLORHEXIDINE [Suspect]
     Active Substance: CHLORHEXIDINE
     Indication: Product used for unknown indication
     Route: 002
  178. CHLORHEXIDINE [Suspect]
     Active Substance: CHLORHEXIDINE
     Route: 048
  179. CHLORHEXIDINE [Suspect]
     Active Substance: CHLORHEXIDINE
  180. CHLORHEXIDINE [Suspect]
     Active Substance: CHLORHEXIDINE
     Route: 061
  181. SULFAMETHOXAZOLE AND TRIMETHOPRIM [Suspect]
     Active Substance: SULFAMETHOXAZOLE\TRIMETHOPRIM
     Indication: Product used for unknown indication
  182. ZESTRIL [Concomitant]
     Active Substance: LISINOPRIL
     Indication: Product used for unknown indication
  183. RISEDRONATE SODIUM [Concomitant]
     Active Substance: RISEDRONATE SODIUM
     Indication: Product used for unknown indication
  184. ACTEMRA [Suspect]
     Active Substance: TOCILIZUMAB
     Indication: Rheumatoid arthritis
     Route: 042
  185. ACTEMRA [Suspect]
     Active Substance: TOCILIZUMAB
     Route: 042
  186. ACTEMRA [Suspect]
     Active Substance: TOCILIZUMAB
     Route: 058
  187. ACTEMRA [Suspect]
     Active Substance: TOCILIZUMAB
     Route: 042
  188. ACTEMRA [Suspect]
     Active Substance: TOCILIZUMAB
     Route: 016
  189. ACTEMRA [Suspect]
     Active Substance: TOCILIZUMAB
     Route: 042
  190. ACTEMRA [Suspect]
     Active Substance: TOCILIZUMAB
     Route: 042
  191. ACTEMRA [Suspect]
     Active Substance: TOCILIZUMAB
     Route: 042
  192. ACTEMRA [Suspect]
     Active Substance: TOCILIZUMAB
  193. ACTEMRA [Suspect]
     Active Substance: TOCILIZUMAB
     Route: 058
  194. ACTEMRA [Suspect]
     Active Substance: TOCILIZUMAB
  195. ACTEMRA [Suspect]
     Active Substance: TOCILIZUMAB
     Route: 058
  196. ACTEMRA [Suspect]
     Active Substance: TOCILIZUMAB
     Route: 061
  197. ACTEMRA [Suspect]
     Active Substance: TOCILIZUMAB
     Route: 058
  198. ACTEMRA [Suspect]
     Active Substance: TOCILIZUMAB
     Route: 042
  199. ACTEMRA [Suspect]
     Active Substance: TOCILIZUMAB
     Indication: Product used for unknown indication
  200. PREDNISOLONE [Concomitant]
     Active Substance: PREDNISOLONE
     Indication: Product used for unknown indication
  201. ADALIMUMAB [Suspect]
     Active Substance: ADALIMUMAB
     Indication: Rheumatoid arthritis
     Route: 058
  202. ADALIMUMAB [Suspect]
     Active Substance: ADALIMUMAB
     Route: 058
  203. TOFACITINIB CITRATE [Suspect]
     Active Substance: TOFACITINIB CITRATE
     Indication: Product used for unknown indication
  204. MYCOPHENOLATE MOFETIL [Suspect]
     Active Substance: MYCOPHENOLATE MOFETIL
     Indication: Product used for unknown indication
  205. METHOTREXATE [Suspect]
     Active Substance: METHOTREXATE
     Indication: Rheumatoid arthritis
  206. METHOTREXATE [Suspect]
     Active Substance: METHOTREXATE
     Indication: Psoriatic arthropathy
     Route: 042
  207. METHOTREXATE [Suspect]
     Active Substance: METHOTREXATE
     Route: 058
  208. METHOTREXATE [Suspect]
     Active Substance: METHOTREXATE
     Route: 048
  209. METHOTREXATE [Suspect]
     Active Substance: METHOTREXATE
     Route: 048
  210. METHOTREXATE [Suspect]
     Active Substance: METHOTREXATE
     Route: 016
  211. METHOTREXATE [Suspect]
     Active Substance: METHOTREXATE
     Route: 042
  212. METHOTREXATE [Suspect]
     Active Substance: METHOTREXATE
     Route: 058
  213. METHOTREXATE [Suspect]
     Active Substance: METHOTREXATE
  214. METHOTREXATE [Suspect]
     Active Substance: METHOTREXATE
     Route: 013
  215. METHOTREXATE [Suspect]
     Active Substance: METHOTREXATE
  216. METHOTREXATE [Suspect]
     Active Substance: METHOTREXATE
     Route: 048
  217. METHOTREXATE [Suspect]
     Active Substance: METHOTREXATE
     Route: 048
  218. METHOTREXATE [Suspect]
     Active Substance: METHOTREXATE
     Route: 048
  219. METHOTREXATE [Suspect]
     Active Substance: METHOTREXATE
     Route: 042
  220. METHOTREXATE [Suspect]
     Active Substance: METHOTREXATE
     Route: 042
  221. METHOTREXATE [Suspect]
     Active Substance: METHOTREXATE
     Route: 013
  222. METHOTREXATE [Suspect]
     Active Substance: METHOTREXATE
     Route: 048
  223. METHOTREXATE [Suspect]
     Active Substance: METHOTREXATE
     Route: 048
  224. METHOTREXATE [Suspect]
     Active Substance: METHOTREXATE
     Route: 051
  225. METHOTREXATE [Suspect]
     Active Substance: METHOTREXATE
  226. METHOTREXATE [Suspect]
     Active Substance: METHOTREXATE
     Route: 042
  227. METHOTREXATE [Suspect]
     Active Substance: METHOTREXATE
     Route: 048
  228. METHOTREXATE [Suspect]
     Active Substance: METHOTREXATE
  229. METHOTREXATE [Suspect]
     Active Substance: METHOTREXATE
     Route: 048
  230. METHOTREXATE [Suspect]
     Active Substance: METHOTREXATE
     Route: 013
  231. METHOTREXATE [Suspect]
     Active Substance: METHOTREXATE
     Route: 058
  232. METHOTREXATE [Suspect]
     Active Substance: METHOTREXATE
     Route: 048
  233. METHOTREXATE [Suspect]
     Active Substance: METHOTREXATE
     Route: 048
  234. CORTISONE [Suspect]
     Active Substance: CORTISONE
     Indication: Rheumatoid arthritis
     Route: 003
  235. NAPROXEN [Suspect]
     Active Substance: NAPROXEN
     Indication: Rheumatoid arthritis
  236. NAPROXEN [Suspect]
     Active Substance: NAPROXEN
  237. DESOGESTREL AND ETHINYL ESTRADIOL [Concomitant]
     Active Substance: DESOGESTREL\ETHINYL ESTRADIOL
     Indication: Product used for unknown indication
  238. LEFLUNOMIDE [Suspect]
     Active Substance: LEFLUNOMIDE
     Indication: Rheumatoid arthritis
     Route: 048
  239. LEFLUNOMIDE [Suspect]
     Active Substance: LEFLUNOMIDE
     Route: 048
  240. XELJANZ [Suspect]
     Active Substance: TOFACITINIB CITRATE
     Indication: Rheumatoid arthritis
  241. XELJANZ [Suspect]
     Active Substance: TOFACITINIB CITRATE
     Route: 048
  242. XELJANZ [Suspect]
     Active Substance: TOFACITINIB CITRATE
  243. XELJANZ [Suspect]
     Active Substance: TOFACITINIB CITRATE
  244. XELJANZ [Suspect]
     Active Substance: TOFACITINIB CITRATE
  245. XELJANZ [Suspect]
     Active Substance: TOFACITINIB CITRATE
  246. XELJANZ [Suspect]
     Active Substance: TOFACITINIB CITRATE
     Route: 048
  247. OTEZLA [Suspect]
     Active Substance: APREMILAST
     Indication: Product used for unknown indication
     Route: 048
  248. DICLOFENAC POTASSIUM [Suspect]
     Active Substance: DICLOFENAC POTASSIUM
     Indication: Product used for unknown indication
     Route: 048
  249. DICLOFENAC POTASSIUM [Suspect]
     Active Substance: DICLOFENAC POTASSIUM
     Indication: Rheumatoid arthritis
     Route: 048
  250. CELEBREX [Suspect]
     Active Substance: CELECOXIB
     Indication: Arthritis
  251. CELEBREX [Suspect]
     Active Substance: CELECOXIB
     Indication: Rheumatoid arthritis
  252. CELEBREX [Suspect]
     Active Substance: CELECOXIB
  253. CELEBREX [Suspect]
     Active Substance: CELECOXIB
     Route: 048
  254. CELEBREX [Suspect]
     Active Substance: CELECOXIB
     Route: 048
  255. CELEBREX [Suspect]
     Active Substance: CELECOXIB
  256. CELEBREX [Suspect]
     Active Substance: CELECOXIB
     Route: 048
  257. CELEBREX [Suspect]
     Active Substance: CELECOXIB
     Route: 048
  258. DILTIAZEM [Suspect]
     Active Substance: DILTIAZEM
     Indication: Product used for unknown indication
  259. SULFASALAZINE [Suspect]
     Active Substance: SULFASALAZINE
     Indication: Rheumatoid arthritis
     Route: 048
  260. SULFASALAZINE [Suspect]
     Active Substance: SULFASALAZINE
     Route: 048
  261. SULFASALAZINE [Suspect]
     Active Substance: SULFASALAZINE
     Route: 048
  262. SULFASALAZINE [Suspect]
     Active Substance: SULFASALAZINE
     Route: 048
  263. SULFASALAZINE [Suspect]
     Active Substance: SULFASALAZINE
     Route: 048
  264. SULFASALAZINE [Suspect]
     Active Substance: SULFASALAZINE
     Route: 048
  265. SULFASALAZINE [Suspect]
     Active Substance: SULFASALAZINE
  266. SULFASALAZINE [Suspect]
     Active Substance: SULFASALAZINE
  267. SULFASALAZINE [Suspect]
     Active Substance: SULFASALAZINE
  268. SULFASALAZINE [Suspect]
     Active Substance: SULFASALAZINE
  269. SULFASALAZINE [Suspect]
     Active Substance: SULFASALAZINE
  270. SULFASALAZINE [Suspect]
     Active Substance: SULFASALAZINE
     Route: 048
  271. SULFASALAZINE [Suspect]
     Active Substance: SULFASALAZINE
  272. SULFASALAZINE [Suspect]
     Active Substance: SULFASALAZINE
     Route: 058
  273. SULFASALAZINE [Suspect]
     Active Substance: SULFASALAZINE
     Route: 048
  274. SULFASALAZINE [Suspect]
     Active Substance: SULFASALAZINE
  275. SULFASALAZINE [Suspect]
     Active Substance: SULFASALAZINE
  276. SULFASALAZINE [Suspect]
     Active Substance: SULFASALAZINE
     Route: 048
  277. SULFASALAZINE [Suspect]
     Active Substance: SULFASALAZINE
     Route: 058
  278. SULFASALAZINE [Suspect]
     Active Substance: SULFASALAZINE
  279. SULFASALAZINE [Suspect]
     Active Substance: SULFASALAZINE
     Route: 048
  280. SULFASALAZINE [Suspect]
     Active Substance: SULFASALAZINE
     Route: 048
  281. SULFASALAZINE [Suspect]
     Active Substance: SULFASALAZINE
     Route: 058
  282. SULFASALAZINE [Suspect]
     Active Substance: SULFASALAZINE
     Route: 048
  283. SULFASALAZINE [Suspect]
     Active Substance: SULFASALAZINE
  284. SULFASALAZINE [Suspect]
     Active Substance: SULFASALAZINE
     Route: 048
  285. SULFASALAZINE [Suspect]
     Active Substance: SULFASALAZINE
  286. SULFASALAZINE [Suspect]
     Active Substance: SULFASALAZINE
     Route: 048
  287. SULFASALAZINE [Suspect]
     Active Substance: SULFASALAZINE
  288. SULFASALAZINE [Suspect]
     Active Substance: SULFASALAZINE
     Route: 048
  289. SULFASALAZINE [Suspect]
     Active Substance: SULFASALAZINE
  290. SULFASALAZINE [Suspect]
     Active Substance: SULFASALAZINE
  291. SULFASALAZINE [Suspect]
     Active Substance: SULFASALAZINE
     Route: 048
  292. TOCILIZUMAB [Suspect]
     Active Substance: TOCILIZUMAB
     Indication: Rheumatoid arthritis
     Route: 058
  293. CHLORAPREP [Suspect]
     Active Substance: CHLORHEXIDINE GLUCONATE\ISOPROPYL ALCOHOL
     Indication: Rheumatoid arthritis
  294. CHLORAPREP [Suspect]
     Active Substance: CHLORHEXIDINE GLUCONATE\ISOPROPYL ALCOHOL
     Route: 061
  295. CHLORAPREP [Suspect]
     Active Substance: CHLORHEXIDINE GLUCONATE\ISOPROPYL ALCOHOL
     Route: 058
  296. CHLORAPREP [Suspect]
     Active Substance: CHLORHEXIDINE GLUCONATE\ISOPROPYL ALCOHOL
  297. Caffeine;Codeine phosphate;Propyphenazone [Concomitant]
     Indication: Product used for unknown indication
  298. ERYTHROMYCIN [Concomitant]
     Active Substance: ERYTHROMYCIN
     Indication: Product used for unknown indication
  299. VITAMIN C [Concomitant]
     Active Substance: ASCORBIC ACID
     Indication: Product used for unknown indication
  300. PREDNISONE [Suspect]
     Active Substance: PREDNISONE
     Indication: Rheumatoid arthritis
     Route: 048
  301. PREDNISONE [Suspect]
     Active Substance: PREDNISONE
     Indication: Arthralgia
  302. PREDNISONE [Suspect]
     Active Substance: PREDNISONE
     Indication: Condition aggravated
     Route: 048
  303. PREDNISONE [Suspect]
     Active Substance: PREDNISONE
     Route: 048
  304. PREDNISONE [Suspect]
     Active Substance: PREDNISONE
     Route: 048
  305. PREDNISONE [Suspect]
     Active Substance: PREDNISONE
     Route: 048
  306. PREDNISONE [Suspect]
     Active Substance: PREDNISONE
     Route: 048
  307. PERIOGARD [Suspect]
     Active Substance: CHLORHEXIDINE GLUCONATE
     Indication: Product used for unknown indication
     Route: 002
  308. PERIOGARD [Suspect]
     Active Substance: CHLORHEXIDINE GLUCONATE
     Route: 002
  309. ISOPROPYL ALCOHOL [Suspect]
     Active Substance: ISOPROPYL ALCOHOL
     Indication: Product used for unknown indication
  310. ISOPROPYL ALCOHOL [Suspect]
     Active Substance: ISOPROPYL ALCOHOL
  311. REMICADE [Suspect]
     Active Substance: INFLIXIMAB
     Indication: Psoriatic arthropathy
     Route: 042
  312. REMICADE [Suspect]
     Active Substance: INFLIXIMAB
     Indication: Rheumatoid arthritis
  313. REMICADE [Suspect]
     Active Substance: INFLIXIMAB
     Route: 042
  314. REMICADE [Suspect]
     Active Substance: INFLIXIMAB
     Route: 042
  315. REMICADE [Suspect]
     Active Substance: INFLIXIMAB
  316. REMICADE [Suspect]
     Active Substance: INFLIXIMAB
     Route: 042
  317. Levothyroxine sodium;Potassium iodide [Concomitant]
     Indication: Product used for unknown indication
  318. LISINOPRIL [Concomitant]
     Active Substance: LISINOPRIL
     Indication: Product used for unknown indication
  319. ATIVAN [Concomitant]
     Active Substance: LORAZEPAM
     Indication: Product used for unknown indication
  320. HYDROCORTISONE [Suspect]
     Active Substance: HYDROCORTISONE
     Indication: Rheumatoid arthritis
     Route: 048
  321. HYDROCORTISONE [Suspect]
     Active Substance: HYDROCORTISONE
  322. HYDROCORTISONE [Suspect]
     Active Substance: HYDROCORTISONE
  323. HYDROCORTISONE [Suspect]
     Active Substance: HYDROCORTISONE
  324. HYDROCORTISONE [Suspect]
     Active Substance: HYDROCORTISONE
     Route: 058
  325. TRAMADOL HYDROCHLORIDE [Suspect]
     Active Substance: TRAMADOL HYDROCHLORIDE
     Indication: Product used for unknown indication
  326. LISINOPRIL [Concomitant]
     Active Substance: LISINOPRIL
     Indication: Product used for unknown indication
  327. IBUPROFEN [Concomitant]
     Active Substance: IBUPROFEN
     Indication: Product used for unknown indication
  328. PSEUDOEPHEDRINE [Suspect]
     Active Substance: PSEUDOEPHEDRINE
     Indication: Sinusitis
  329. PSEUDOEPHEDRINE [Suspect]
     Active Substance: PSEUDOEPHEDRINE
     Indication: Rheumatoid arthritis
  330. PSEUDOEPHEDRINE [Suspect]
     Active Substance: PSEUDOEPHEDRINE
     Indication: Off label use
  331. PSEUDOEPHEDRINE [Suspect]
     Active Substance: PSEUDOEPHEDRINE
  332. PSEUDOEPHEDRINE [Suspect]
     Active Substance: PSEUDOEPHEDRINE
  333. SULFAMETER [Suspect]
     Active Substance: SULFAMETER

REACTIONS (19)
  - Helicobacter infection [Fatal]
  - Exostosis [Fatal]
  - Hypercholesterolaemia [Fatal]
  - Swollen joint count [Fatal]
  - Folliculitis [Fatal]
  - Loss of personal independence in daily activities [Fatal]
  - Maternal exposure during pregnancy [Fatal]
  - Swelling [Fatal]
  - Lower limb fracture [Fatal]
  - Muscle injury [Fatal]
  - Gait inability [Fatal]
  - Wheezing [Fatal]
  - Walking aid user [Fatal]
  - Hand deformity [Fatal]
  - Urticaria [Fatal]
  - Infusion related reaction [Fatal]
  - Hypoaesthesia [Fatal]
  - Swollen joint count increased [Fatal]
  - Impaired healing [Fatal]
